FAERS Safety Report 16476833 (Version 2)
Quarter: 2019Q4

REPORT INFORMATION
  Report Type: Spontaneous
  Country: IT (occurrence: IT)
  Receive Date: 20190626
  Receipt Date: 20191224
  Transmission Date: 20200122
  Serious: Yes (Death, Other)
  Sender: FDA-Public Use
  Company Number: IT-AMGEN-ITASP2019100350

PATIENT

DRUGS (3)
  1. PARICALCITOL. [Concomitant]
     Active Substance: PARICALCITOL
     Dosage: UNK
  2. PARSABIV [Suspect]
     Active Substance: ETELCALCETIDE HYDROCHLORIDE
     Indication: HYPERPARATHYROIDISM SECONDARY
     Dosage: 2.5 MILLIGRAM/HD
     Route: 010
  3. MIMPARA [Suspect]
     Active Substance: CINACALCET HYDROCHLORIDE
     Indication: HYPERPARATHYROIDISM SECONDARY
     Dosage: UNK
     Route: 065

REACTIONS (7)
  - Treatment noncompliance [Unknown]
  - Hypocalcaemia [Unknown]
  - Renal transplant [Unknown]
  - Blood parathyroid hormone decreased [Unknown]
  - Sepsis [Fatal]
  - Drug ineffective [Unknown]
  - Drug intolerance [Unknown]
